FAERS Safety Report 13362624 (Version 4)
Quarter: 2017Q4

REPORT INFORMATION
  Report Type: Spontaneous
  Country: US (occurrence: US)
  Receive Date: 20170323
  Receipt Date: 20171121
  Transmission Date: 20180320
  Serious: Yes (Other)
  Sender: FDA-Public Use
  Company Number: US-PFIZER INC-2017122941

PATIENT
  Age: 58 Year
  Sex: Female

DRUGS (1)
  1. XELJANZ XR [Suspect]
     Active Substance: TOFACITINIB CITRATE
     Indication: RHEUMATOID ARTHRITIS
     Dosage: 11 MG, UNK

REACTIONS (10)
  - Mouth ulceration [Recovering/Resolving]
  - Skin disorder [Unknown]
  - Sinusitis [Unknown]
  - Urticaria [Unknown]
  - Rash [Unknown]
  - Malaise [Unknown]
  - Nasopharyngitis [Unknown]
  - Oropharyngeal blistering [Unknown]
  - Respiratory tract congestion [Unknown]
  - Plicated tongue [Unknown]
